FAERS Safety Report 17331219 (Version 1)
Quarter: 2020Q1

REPORT INFORMATION
  Report Type: Spontaneous
  Country: US (occurrence: US)
  Receive Date: 20200111
  Receipt Date: 20200111
  Transmission Date: 20200409
  Serious: No
  Sender: FDA-Public Use
  Company Number: None

PATIENT
  Age: 82 Year
  Sex: Male

DRUGS (1)
  1. REPATHA [Suspect]
     Active Substance: EVOLOCUMAB
     Dosage: ?          OTHER
     Route: 058
     Dates: start: 201806

REACTIONS (2)
  - Device malfunction [None]
  - Injection site haemorrhage [None]

NARRATIVE: CASE EVENT DATE: 20200111
